FAERS Safety Report 25917186 (Version 1)
Quarter: 2025Q4

REPORT INFORMATION
  Report Type: Spontaneous
  Country: CN (occurrence: CN)
  Receive Date: 20251014
  Receipt Date: 20251014
  Transmission Date: 20260118
  Serious: Yes (Other)
  Sender: BAXTER
  Company Number: None

PATIENT
  Age: 38 Year
  Sex: Female
  Weight: 62 kg

DRUGS (7)
  1. CYCLOPHOSPHAMIDE [Suspect]
     Active Substance: CYCLOPHOSPHAMIDE
     Indication: Breast cancer female
     Dosage: 0.8 G, QD
     Route: 041
     Dates: start: 20250910, end: 20250910
  2. SODIUM CHLORIDE [Suspect]
     Active Substance: SODIUM CHLORIDE
     Indication: Medication dilution
     Dosage: 50 ML, QD (D1) (CYCLOPHOSPHAMIDE + 0.9% SODIUM CHLORIDE)
     Route: 041
     Dates: start: 20250910, end: 20250910
  3. SODIUM CHLORIDE [Suspect]
     Active Substance: SODIUM CHLORIDE
     Dosage: 100 ML, QD (D1) (EPIRUBICIN HYDROCHLORIDE + 9% SODIUM CHLORIDE)
     Route: 041
     Dates: start: 20250910, end: 20250910
  4. SODIUM CHLORIDE [Suspect]
     Active Substance: SODIUM CHLORIDE
     Dosage: 60 ML, QD (D2) (PACLITAXEL FOR INJECTION (ALBUMIN BOUND) + 0.9% SODIUM CHLORIDE)
     Route: 041
     Dates: start: 20250911, end: 20250911
  5. EPIRUBICIN HYDROCHLORIDE [Suspect]
     Active Substance: EPIRUBICIN HYDROCHLORIDE
     Indication: Breast cancer female
     Dosage: 100 MG, QD (D1)
     Route: 041
     Dates: start: 20250910, end: 20250910
  6. PACLITAXEL [Suspect]
     Active Substance: PACLITAXEL
     Indication: Breast cancer female
     Dosage: 0.3 G, QD (D2)
     Route: 041
     Dates: start: 20250911, end: 20250911
  7. WATER FOR INJECTION [Concomitant]
     Active Substance: WATER
     Indication: Medication dilution
     Dosage: 50 ML, QD (D1) (EPIRUBICIN HYDROCHLORIDE + STERILE WATER FOR INJECTION)
     Route: 041
     Dates: start: 20250910, end: 20250910

REACTIONS (1)
  - Myelosuppression [Recovered/Resolved]

NARRATIVE: CASE EVENT DATE: 20250917
